FAERS Safety Report 5310941-9 (Version None)
Quarter: 2007Q2

REPORT INFORMATION
  Report Type: 
  Country: None (occurrence: None)
  Receive Date: 20070426
  Receipt Date: 20070426
  Transmission Date: 20071010
  Serious: No
  Sender: FDA-Public Use
  Company Number: None

PATIENT
  Age: 34 Year
  Sex: Male
  Weight: 83.9154 kg

DRUGS (1)
  1. LISTERINE AGENT COOL BLUE PLAQUE DETECTING [Suspect]

REACTIONS (7)
  - ASTHENIA [None]
  - DYSPHAGIA [None]
  - IMPAIRED WORK ABILITY [None]
  - MALAISE [None]
  - MOUTH ULCERATION [None]
  - ORAL INTAKE REDUCED [None]
  - PHARMACEUTICAL PRODUCT COMPLAINT [None]
